FAERS Safety Report 5751400-9 (Version None)
Quarter: 2008Q2

REPORT INFORMATION
  Report Type: 
  Country: None (occurrence: None)
  Receive Date: 20080527
  Receipt Date: 20080505
  Transmission Date: 20081010
  Serious: Yes (Other)
  Sender: FDA-Public Use
  Company Number: OPER20080061

PATIENT
  Age: 65 Year
  Sex: Female
  Weight: 99.7913 kg

DRUGS (6)
  1. OPANA ER [Suspect]
     Indication: PAIN
     Dosage: 5 MG, 1 TABLET BID, PER ORAL
     Route: 048
     Dates: start: 20080319
  2. OPANA [Suspect]
     Indication: PAIN
     Dosage: 5 MG, 1 TABLET BID PRN, PER ORAL
     Route: 048
     Dates: start: 20080319
  3. BENADRYL [Concomitant]
  4. MOBIC [Concomitant]
  5. ARIMIDEX [Concomitant]
  6. PROZAC [Concomitant]

REACTIONS (11)
  - ANXIETY [None]
  - BALANCE DISORDER [None]
  - DIZZINESS [None]
  - FATIGUE [None]
  - HEADACHE [None]
  - HEART RATE INCREASED [None]
  - INADEQUATE ANALGESIA [None]
  - INITIAL INSOMNIA [None]
  - MIDDLE INSOMNIA [None]
  - NERVOUSNESS [None]
  - SOMNOLENCE [None]
